FAERS Safety Report 11100933 (Version 1)
Quarter: 2015Q2

REPORT INFORMATION
  Report Type: Spontaneous
  Country: US (occurrence: US)
  Receive Date: 20150508
  Receipt Date: 20150508
  Transmission Date: 20150821
  Serious: No
  Sender: FDA-Public Use
  Company Number: US-GLAXOSMITHKLINE-US2015061930

PATIENT
  Age: 67 Year
  Sex: Female

DRUGS (18)
  1. BREO ELLIPTA [Suspect]
     Active Substance: FLUTICASONE FUROATE\VILANTEROL TRIFENATATE
     Indication: CHRONIC OBSTRUCTIVE PULMONARY DISEASE
     Dosage: 1 PUFF(S), BID
     Route: 055
     Dates: start: 201501
  2. CYMBALTA [Concomitant]
     Active Substance: DULOXETINE HYDROCHLORIDE
  3. DILTIAZEM [Concomitant]
     Active Substance: DILTIAZEM
  4. PRILOSEC [Concomitant]
     Active Substance: OMEPRAZOLE MAGNESIUM
  5. CODEINE COUGH SYRUP [Concomitant]
  6. METOPROLOL [Concomitant]
     Active Substance: METOPROLOL
  7. HYDROCHLOROTHIAZIDE. [Concomitant]
     Active Substance: HYDROCHLOROTHIAZIDE
  8. BREO ELLIPTA [Suspect]
     Active Substance: FLUTICASONE FUROATE\VILANTEROL TRIFENATATE
     Indication: EMPHYSEMA
  9. DULERA [Concomitant]
     Active Substance: FORMOTEROL FUMARATE DIHYDRATE\MOMETASONE FUROATE
  10. METFORMIN [Concomitant]
     Active Substance: METFORMIN HYDROCHLORIDE
  11. VENTOLIN HFA [Concomitant]
     Active Substance: ALBUTEROL SULFATE
  12. NEBULIZED ALBUTEROL [Concomitant]
  13. NOVOLOG [Concomitant]
     Active Substance: INSULIN ASPART
  14. PRAMIPEXOLE [Concomitant]
     Active Substance: PRAMIPEXOLE
  15. TIZANIDINE (TIZANIDINE) [Concomitant]
     Active Substance: TIZANIDINE
  16. LEVEMIR [Concomitant]
     Active Substance: INSULIN DETEMIR
  17. HYDROCODONE [Concomitant]
     Active Substance: HYDROCODONE
  18. IRBESARTAN. [Concomitant]
     Active Substance: IRBESARTAN

REACTIONS (4)
  - Chest pain [Not Recovered/Not Resolved]
  - Overdose [Unknown]
  - Drug administration error [Unknown]
  - Heart rate increased [Not Recovered/Not Resolved]

NARRATIVE: CASE EVENT DATE: 201501
